FAERS Safety Report 6437562-9 (Version None)
Quarter: 2009Q4

REPORT INFORMATION
  Report Type: 
  Country: None (occurrence: None)
  Receive Date: 20091112
  Receipt Date: 20091105
  Transmission Date: 20100525
  Serious: Yes (Other)
  Sender: FDA-Public Use
  Company Number: A0816434A

PATIENT
  Age: 62 Year
  Sex: Female

DRUGS (1)
  1. ABREVA [Suspect]
     Route: 061

REACTIONS (5)
  - DYSPNOEA [None]
  - LIP SWELLING [None]
  - PULMONARY CONGESTION [None]
  - SPEECH DISORDER [None]
  - WHEEZING [None]
